FAERS Safety Report 7547457-5 (Version None)
Quarter: 2011Q2

REPORT INFORMATION
  Report Type: 
  Country: None (occurrence: None)
  Receive Date: 20110614
  Receipt Date: 20110607
  Transmission Date: 20111010
  Serious: Yes (Hospitalization)
  Sender: FDA-Public Use
  Company Number: US-TEVA-284985USA

PATIENT
  Age: 47 Year
  Sex: Male
  Weight: 83.99 kg

DRUGS (4)
  1. ESOMEPRAZOLE MAGNESIUM [Suspect]
     Indication: GASTROOESOPHAGEAL REFLUX DISEASE
     Dosage: 40 MILLIGRAM;
     Route: 048
  2. PANTOPRAZOLE [Suspect]
     Indication: GASTROOESOPHAGEAL REFLUX DISEASE
     Dosage: 80 MILLIGRAM;
     Route: 042
     Dates: start: 20100723, end: 20110422
  3. DOXYCYCLINE [Suspect]
     Dosage: 2X/DAY
     Route: 048
     Dates: start: 20100101
  4. PROMETHAZINE HCL [Suspect]
     Indication: NAUSEA
     Dosage: AS NEEDED
     Route: 048

REACTIONS (2)
  - DRUG SCREEN POSITIVE [None]
  - DIVERTICULITIS [None]
